FAERS Safety Report 7555065-5 (Version None)
Quarter: 2011Q2

REPORT INFORMATION
  Report Type: 
  Country: None (occurrence: None)
  Receive Date: 20110617
  Receipt Date: 20110615
  Transmission Date: 20111010
  Serious: Yes (Hospitalization)
  Sender: FDA-Public Use
  Company Number: US-ABBOTT-11P-163-0732538-00

PATIENT
  Age: 35 Year
  Sex: Female

DRUGS (9)
  1. RISPERIDONE [Suspect]
     Route: 048
  2. PERPHENAZINE [Suspect]
     Indication: AGITATION
     Route: 048
  3. VALPROIC ACID [Suspect]
     Indication: AGITATION
     Dosage: 1500 MILLIGRAMS; AT BEDTIME
     Route: 048
  4. LITHIUM CARBONATE [Suspect]
     Indication: AGITATION
     Route: 048
  5. OLANZAPINE [Suspect]
     Indication: AGITATION
     Route: 048
  6. RISPERIDONE [Suspect]
     Indication: AGITATION
     Route: 048
  7. HALOPERIDOL [Suspect]
     Indication: AGITATION
  8. BENZTROPINE MESYLATE [Suspect]
     Indication: EXTRAPYRAMIDAL DISORDER
     Route: 048
  9. BENZTROPINE MESYLATE [Suspect]
     Route: 048

REACTIONS (3)
  - ABDOMINAL PAIN [None]
  - ABDOMINAL DISTENSION [None]
  - ILEUS PARALYTIC [None]
